FAERS Safety Report 25166804 (Version 1)
Quarter: 2025Q2

REPORT INFORMATION
  Report Type: Spontaneous
  Country: IL (occurrence: IL)
  Receive Date: 20250407
  Receipt Date: 20250407
  Transmission Date: 20250717
  Serious: Yes (Life-Threatening, Hospitalization, Other)
  Sender: ELI LILLY AND CO
  Company Number: IL-ELI_LILLY_AND_COMPANY-IL202504002355

PATIENT
  Age: 45 Year
  Sex: Male

DRUGS (2)
  1. FLUOXETINE HYDROCHLORIDE [Suspect]
     Active Substance: FLUOXETINE HYDROCHLORIDE
     Indication: Depression
     Dosage: 20 MG, DAILY
     Route: 065
  2. LITHIUM CARBONATE [Suspect]
     Active Substance: LITHIUM CARBONATE
     Indication: Depression
     Dosage: 600 MG, DAILY
     Route: 065

REACTIONS (9)
  - Temperature intolerance [Unknown]
  - Heat stroke [Unknown]
  - Loss of consciousness [Recovered/Resolved]
  - Febrile convulsion [Unknown]
  - Coma [Recovered/Resolved]
  - Cerebellar atrophy [Not Recovered/Not Resolved]
  - Disseminated intravascular coagulation [Unknown]
  - Blood urea increased [Unknown]
  - Blood creatine phosphokinase increased [Unknown]
